FAERS Safety Report 13742589 (Version 1)
Quarter: 2017Q3

REPORT INFORMATION
  Report Type: Spontaneous
  Country: FR (occurrence: FR)
  Receive Date: 20170711
  Receipt Date: 20170711
  Transmission Date: 20171127
  Serious: Yes (Death, Other)
  Sender: FDA-Public Use
  Company Number: PHHY2012FR074593

PATIENT
  Age: 51 Year
  Sex: Male

DRUGS (9)
  1. DESFLURANE. [Concomitant]
     Active Substance: DESFLURANE
     Dates: start: 19981204, end: 19981204
  2. MIDAZOLAM [Concomitant]
     Active Substance: MIDAZOLAM HYDROCHLORIDE
     Dosage: 3 MG, UNK
     Dates: start: 19981204, end: 19981204
  3. PROPOFOL. [Concomitant]
     Active Substance: PROPOFOL
     Dosage: 200 MG, UNK
     Dates: start: 19981204, end: 19981204
  4. SUFENTANIL [Concomitant]
     Active Substance: SUFENTANIL
     Dates: start: 19981204, end: 19981204
  5. TISSUCOL [Suspect]
     Active Substance: FIBRINOGEN HUMAN\THROMBIN HUMAN
     Dosage: 1 DF, UNK
     Route: 061
     Dates: start: 19981204, end: 19981204
  6. ORBENINE [Concomitant]
     Active Substance: CLOXACILLIN SODIUM
     Dosage: 2 G, UNK
     Route: 058
     Dates: start: 19981204, end: 19981204
  7. CARTEOLOL [Suspect]
     Active Substance: CARTEOLOL
     Indication: OPEN ANGLE GLAUCOMA
     Route: 047
  8. ADRENALINE [Suspect]
     Active Substance: EPINEPHRINE
     Route: 042
     Dates: start: 19981207
  9. ESMERON [Concomitant]
     Active Substance: ROCURONIUM BROMIDE
     Dates: start: 19981204, end: 19981204

REACTIONS (10)
  - Cardiac arrest [Unknown]
  - Urticaria [Unknown]
  - Bronchospasm [Unknown]
  - Haemorrhage [Unknown]
  - Hypotension [Unknown]
  - Anaphylactic shock [Unknown]
  - Heart rate abnormal [Unknown]
  - Cardiogenic shock [Fatal]
  - Piloerection [Unknown]
  - Seizure [Unknown]
